FAERS Safety Report 5154619-3 (Version None)
Quarter: 2006Q4

REPORT INFORMATION
  Report Type: 
  Country: None (occurrence: None)
  Receive Date: 20061113
  Receipt Date: 20061030
  Transmission Date: 20070319
  Serious: Yes (Life-Threatening, Hospitalization)
  Sender: FDA-Public Use
  Company Number: POMP-10859

PATIENT
  Age: 20 Month
  Sex: Female

DRUGS (3)
  1. MYOZYME [Suspect]
     Indication: GLYCOGEN STORAGE DISEASE TYPE II
     Dosage: 20  MG/KG Q2WKS IV
     Route: 042
     Dates: start: 20060505
  2. MYOZYME [Suspect]
     Indication: GLYCOGEN STORAGE DISEASE TYPE II
     Dosage: 20 MG/KG Q2WKS IV
     Route: 042
     Dates: start: 20051021, end: 20060401
  3. CARDIAC SUPPORTIVE TREATMENT [Concomitant]

REACTIONS (6)
  - CARDIAC FUNCTION TEST ABNORMAL [None]
  - CARDIAC VENTRICULAR DISORDER [None]
  - DIARRHOEA [None]
  - GENERAL PHYSICAL HEALTH DETERIORATION [None]
  - PYREXIA [None]
  - WEIGHT DECREASED [None]
